FAERS Safety Report 11667049 (Version 2)
Quarter: 2015Q4

REPORT INFORMATION
  Report Type: Spontaneous
  Country: US (occurrence: US)
  Receive Date: 20151027
  Receipt Date: 20151104
  Transmission Date: 20160304
  Serious: Yes (Hospitalization)
  Sender: FDA-Public Use
  Company Number: US-ASTRAZENECA-2015SF01236

PATIENT
  Age: 62 Year
  Sex: Female

DRUGS (19)
  1. AVYCAZ [Suspect]
     Active Substance: AVIBACTAM SODIUM\CEFTAZIDIME
     Indication: LIVER ABSCESS
     Route: 042
  2. COLISTIN [Suspect]
     Active Substance: COLISTIN
     Indication: KLEBSIELLA INFECTION
     Dosage: 300 MG LOADING DOSE
     Route: 065
  3. COLISTIN [Suspect]
     Active Substance: COLISTIN
     Indication: LIVER ABSCESS
     Route: 065
  4. AVYCAZ [Suspect]
     Active Substance: AVIBACTAM SODIUM\CEFTAZIDIME
     Indication: KLEBSIELLA INFECTION
     Route: 042
  5. COLISTIN [Suspect]
     Active Substance: COLISTIN
     Indication: KLEBSIELLA INFECTION
     Route: 065
  6. TIGECYCLINE. [Concomitant]
     Active Substance: TIGECYCLINE
     Indication: KLEBSIELLA INFECTION
     Route: 065
  7. VANCOMYCIN [Concomitant]
     Active Substance: VANCOMYCIN
     Route: 042
  8. MEROPENEM. [Suspect]
     Active Substance: MEROPENEM
     Indication: LIVER ABSCESS
     Dosage: 2 G EVERY 8 HOURS INFUSED OVER 4 HOURS
     Route: 042
  9. COLISTIN [Suspect]
     Active Substance: COLISTIN
     Indication: LIVER ABSCESS
     Dosage: 300 MG LOADING DOSE
     Route: 065
  10. TIGECYCLINE. [Concomitant]
     Active Substance: TIGECYCLINE
     Indication: LIVER ABSCESS
     Route: 065
  11. TRIMETHOPRIM-SULFAMETHOXAZOLE [Concomitant]
     Active Substance: SULFAMETHOXAZOLE\TRIMETHOPRIM
     Route: 065
  12. PIPERACILLIIN-TAZOBACTAM [Concomitant]
     Route: 065
  13. MEROPENEM. [Suspect]
     Active Substance: MEROPENEM
     Indication: LIVER ABSCESS
     Route: 042
  14. POLYMYXIN B. [Concomitant]
     Active Substance: POLYMYXIN B
     Indication: LIVER ABSCESS
     Route: 065
  15. CEFEPIME [Concomitant]
     Active Substance: CEFEPIME HYDROCHLORIDE
     Route: 065
  16. MEROPENEM. [Suspect]
     Active Substance: MEROPENEM
     Indication: KLEBSIELLA INFECTION
     Dosage: 2 G EVERY 8 HOURS INFUSED OVER 4 HOURS
     Route: 042
  17. MEROPENEM. [Suspect]
     Active Substance: MEROPENEM
     Indication: KLEBSIELLA INFECTION
     Route: 042
  18. GENTAMICIN. [Suspect]
     Active Substance: GENTAMICIN
     Indication: CITROBACTER INFECTION
     Route: 042
  19. POLYMYXIN B. [Concomitant]
     Active Substance: POLYMYXIN B
     Indication: KLEBSIELLA INFECTION
     Route: 065

REACTIONS (8)
  - Multiple-drug resistance [Unknown]
  - Renal injury [Unknown]
  - Hypotension [Unknown]
  - Respiratory failure [Unknown]
  - Mental status changes [Unknown]
  - Lung infiltration [Unknown]
  - Drug resistance [Unknown]
  - Klebsiella test positive [Unknown]

NARRATIVE: CASE EVENT DATE: 201502
